FAERS Safety Report 25455216 (Version 1)
Quarter: 2025Q2

REPORT INFORMATION
  Report Type: Spontaneous
  Country: CA (occurrence: CA)
  Receive Date: 20250619
  Receipt Date: 20250619
  Transmission Date: 20250716
  Serious: Yes (Death)
  Sender: CHEPLAPHARM
  Company Number: CA-CHEPLA-2025007410

PATIENT
  Age: 38 Year
  Sex: Male

DRUGS (9)
  1. QUETIAPINE [Suspect]
     Active Substance: QUETIAPINE
     Indication: Insomnia
  2. QUETIAPINE [Suspect]
     Active Substance: QUETIAPINE
     Indication: Anxiety
  3. CLONAZEPAM [Suspect]
     Active Substance: CLONAZEPAM
  4. CAFFEINE [Suspect]
     Active Substance: CAFFEINE
  5. CLOZAPINE [Suspect]
     Active Substance: CLOZAPINE
     Indication: Schizophrenia
  6. LORAZEPAM [Suspect]
     Active Substance: LORAZEPAM
     Indication: Agitation
  7. HALOPERIDOL [Concomitant]
     Active Substance: HALOPERIDOL
     Indication: Agitation
  8. ACETAMINOPHEN [Concomitant]
     Active Substance: ACETAMINOPHEN
  9. MIRTAZAPINE [Concomitant]
     Active Substance: MIRTAZAPINE

REACTIONS (5)
  - Cardiac arrest [Fatal]
  - Drug interaction [Fatal]
  - Drug monitoring procedure not performed [Fatal]
  - Resuscitation [Fatal]
  - Cyanosis [Fatal]
